FAERS Safety Report 22044947 (Version 3)
Quarter: 2023Q1

REPORT INFORMATION
  Report Type: Spontaneous
  Country: US (occurrence: US)
  Receive Date: 20230228
  Receipt Date: 20230303
  Transmission Date: 20230417
  Serious: No
  Sender: FDA-Public Use
  Company Number: US-PFIZER INC-202300085303

PATIENT
  Age: 54 Year
  Sex: Female
  Weight: 81.64 kg

DRUGS (2)
  1. PAXLOVID [Suspect]
     Active Substance: NIRMATRELVIR\RITONAVIR
     Indication: COVID-19 treatment
     Dosage: UNK
  2. AZITHROMYCIN [Suspect]
     Active Substance: AZITHROMYCIN
     Dosage: UNK

REACTIONS (3)
  - Oropharyngeal pain [Unknown]
  - Dysphagia [Unknown]
  - Pharyngeal swelling [Unknown]
